FAERS Safety Report 10881830 (Version 3)
Quarter: 2015Q2

REPORT INFORMATION
  Report Type: Spontaneous
  Country: IT (occurrence: IT)
  Receive Date: 20150303
  Receipt Date: 20150612
  Transmission Date: 20150821
  Serious: Yes (Hospitalization)
  Sender: FDA-Public Use
  Company Number: IT-BAYER-2015-027716

PATIENT
  Age: 46 Year
  Sex: Female
  Weight: 53.7 kg

DRUGS (2)
  1. NEXAVAR [Suspect]
     Active Substance: SORAFENIB
     Dosage: 84 TABLETS OF NEXAVAR 200 MG
     Route: 048
     Dates: start: 20150220, end: 20150220
  2. CITALOPRAM [Concomitant]
     Active Substance: CITALOPRAM HYDROBROMIDE
     Indication: DEPRESSION
     Dosage: 10 MG, DAILY
     Dates: start: 20150223

REACTIONS (3)
  - Suicide attempt [None]
  - Overdose [None]
  - Fatigue [Recovered/Resolved]

NARRATIVE: CASE EVENT DATE: 20150220
